FAERS Safety Report 9978442 (Version 1)
Quarter: 2014Q1

REPORT INFORMATION
  Report Type: Report from Study
  Country: US (occurrence: US)
  Receive Date: 20140306
  Receipt Date: 20140306
  Transmission Date: 20141002
  Serious: No
  Sender: FDA-Public Use
  Company Number: US-ABBVIE-13P-163-1173295-00

PATIENT
  Age: 62 Year
  Sex: Female
  Weight: 63.11 kg

DRUGS (12)
  1. HUMIRA [Suspect]
     Indication: RHEUMATOID ARTHRITIS
     Dates: start: 201208
  2. HUMIRA [Suspect]
     Indication: SARCOIDOSIS
  3. HUMIRA [Suspect]
     Indication: PSORIASIS
  4. FORTEO [Concomitant]
     Indication: BONE DISORDER
  5. ALBUTEROL SULFATE [Concomitant]
     Indication: SARCOIDOSIS
  6. ALBUTEROL SULFATE [Concomitant]
     Indication: BRONCHOSPASM
  7. ASPIRIN [Concomitant]
     Indication: PRODUCT USED FOR UNKNOWN INDICATION
  8. LIPITOR [Concomitant]
     Indication: BLOOD CHOLESTEROL INCREASED
  9. VITAMIN D NOS [Concomitant]
     Indication: VITAMIN SUPPLEMENTATION
  10. FIORICET [Concomitant]
     Indication: MIGRAINE
     Dosage: AND AS NEEDED
  11. GLUCOSAMINE SULFATE [Concomitant]
     Indication: RHEUMATOID ARTHRITIS
  12. UNNAMED OINTMENTS [Concomitant]
     Indication: PSORIASIS

REACTIONS (1)
  - Night sweats [Not Recovered/Not Resolved]
